FAERS Safety Report 13260261 (Version 1)
Quarter: 2017Q1

REPORT INFORMATION
  Report Type: Spontaneous
  Country: US (occurrence: US)
  Receive Date: 20170222
  Receipt Date: 20170222
  Transmission Date: 20170428
  Serious: Yes (Hospitalization)
  Sender: FDA-Public Use
  Company Number: None

PATIENT
  Age: 70 Year
  Sex: Female
  Weight: 61.29 kg

DRUGS (13)
  1. RANITIDINE HYDROCHLORIDE. [Suspect]
     Active Substance: RANITIDINE HYDROCHLORIDE
     Indication: GASTROOESOPHAGEAL REFLUX DISEASE
     Route: 048
     Dates: start: 20161120, end: 20170120
  2. TUMS [Concomitant]
     Active Substance: CALCIUM CARBONATE
  3. CALCIUM [Concomitant]
     Active Substance: CALCIUM
  4. METOPROLOL SUCCINATE. [Concomitant]
     Active Substance: METOPROLOL SUCCINATE
  5. EZETIMIBE. [Concomitant]
     Active Substance: EZETIMIBE
  6. BENADRYL [Concomitant]
     Active Substance: DIPHENHYDRAMINE HYDROCHLORIDE
  7. FLUTICASONE PROP [Concomitant]
  8. ICD [Concomitant]
  9. TYLENOL [Concomitant]
     Active Substance: ACETAMINOPHEN
  10. WARFARIN NA [Concomitant]
  11. GLUCOSAMINE HCL [Concomitant]
     Active Substance: GLUCOSAMINE
  12. MAGNESIUM [Concomitant]
     Active Substance: MAGNESIUM
  13. VITAMIN D [Concomitant]
     Active Substance: CHOLECALCIFEROL

REACTIONS (6)
  - Weight bearing difficulty [None]
  - Arthralgia [None]
  - Joint swelling [None]
  - Contusion [None]
  - Gait disturbance [None]
  - Haemarthrosis [None]

NARRATIVE: CASE EVENT DATE: 20161108
